FAERS Safety Report 17940788 (Version 1)
Quarter: 2020Q2

REPORT INFORMATION
  Report Type: Spontaneous
  Country: IT (occurrence: IT)
  Receive Date: 20200625
  Receipt Date: 20200625
  Transmission Date: 20200714
  Serious: Yes (Life-Threatening, Other)
  Sender: FDA-Public Use
  Company Number: IT-SA-2020SA159637

PATIENT

DRUGS (4)
  1. ATORVASTATINA AUROBINDO [Concomitant]
  2. PANTOPRAZOLO AUROBINDO [Concomitant]
     Active Substance: PANTOPRAZOLE SODIUM
  3. PLAVIX [Suspect]
     Active Substance: CLOPIDOGREL BISULFATE
     Indication: ARTERIAL DISORDER
     Dosage: 75 MG, QD
     Route: 048
     Dates: start: 20190822, end: 20200505
  4. ACETYLSALICYLIC ACID [Suspect]
     Active Substance: ASPIRIN
     Indication: THROMBOSIS
     Dosage: 100 MG, QD
     Route: 048
     Dates: start: 20190503, end: 20200505

REACTIONS (5)
  - Fall [Recovering/Resolving]
  - Vomiting [Recovering/Resolving]
  - Subdural haematoma [Recovering/Resolving]
  - Headache [Recovering/Resolving]
  - Drug interaction [Recovering/Resolving]

NARRATIVE: CASE EVENT DATE: 20200504
